FAERS Safety Report 23625450 (Version 1)
Quarter: 2024Q1

REPORT INFORMATION
  Report Type: Spontaneous
  Country: AU (occurrence: AU)
  Receive Date: 20240313
  Receipt Date: 20240313
  Transmission Date: 20240410
  Serious: Yes (Other)
  Sender: FDA-Public Use
  Company Number: AU-TEVA-VS-3151014

PATIENT
  Sex: Male

DRUGS (8)
  1. ESOMEPRAZOLE [Suspect]
     Active Substance: ESOMEPRAZOLE
     Route: 065
  2. SYMBICORT [Suspect]
     Active Substance: BUDESONIDE\FORMOTEROL FUMARATE DIHYDRATE
     Route: 065
  3. COVERAM [Concomitant]
     Active Substance: AMLODIPINE\PERINDOPRIL
  4. DUTASTERIDE\TAMSULOSIN [Concomitant]
     Active Substance: DUTASTERIDE\TAMSULOSIN
     Dosage: 500/400 (DUTASTERIDE; TAMSULOSIN HYDROCHLORIDE)
  5. ASPIRIN [Concomitant]
     Active Substance: ASPIRIN
  6. EZETIMIBE [Concomitant]
     Active Substance: EZETIMIBE
  7. PREDNISOLONE [Concomitant]
     Active Substance: PREDNISOLONE
  8. ROSUVASTATIN [Suspect]
     Active Substance: ROSUVASTATIN
     Route: 065

REACTIONS (18)
  - Hypereosinophilic syndrome [Unknown]
  - Back pain [Unknown]
  - Lung opacity [Unknown]
  - Nausea [Unknown]
  - Oedema peripheral [Unknown]
  - Pleural effusion [Unknown]
  - Pneumonia [Unknown]
  - Pneumonia [Unknown]
  - Vasculitic rash [Unknown]
  - Vomiting [Unknown]
  - Cough [Unknown]
  - Delirium [Unknown]
  - Diarrhoea [Unknown]
  - Dyspnoea exertional [Unknown]
  - Eosinophil morphology abnormal [Unknown]
  - Eosinophilia [Unknown]
  - Gastrointestinal disorder [Unknown]
  - Hospitalisation [Unknown]
